FAERS Safety Report 14176340 (Version 1)
Quarter: 2017Q4

REPORT INFORMATION
  Report Type: Spontaneous
  Country: PK (occurrence: PK)
  Receive Date: 20171109
  Receipt Date: 20171109
  Transmission Date: 20180321
  Serious: Yes (Other)
  Sender: FDA-Public Use
  Company Number: PK-CORDEN PHARMA LATINA S.P.A.-PK-2017COR000220

PATIENT
  Age: 21 Year
  Sex: Male

DRUGS (5)
  1. CYCLOPHOSPHAMIDE. [Suspect]
     Active Substance: CYCLOPHOSPHAMIDE
     Indication: EWING^S SARCOMA
     Dosage: 7 CYCLES OVER A PERIOD OF 6 MONTHS
     Route: 065
  2. ACTINOMYCIN D [Suspect]
     Active Substance: DACTINOMYCIN
     Indication: EWING^S SARCOMA
     Dosage: 7 CYCLES OVER A PERIOD OF 6 MONTHS
     Route: 065
  3. ETOPOSIDE. [Suspect]
     Active Substance: ETOPOSIDE
     Indication: EWING^S SARCOMA
     Dosage: 7 CYCLES OVER A PERIOD OF 6 MONTHS
     Route: 065
  4. IFOSFAMIDE. [Suspect]
     Active Substance: IFOSFAMIDE
     Indication: EWING^S SARCOMA
     Dosage: 7 CYCLES OVER A PERIOD OF 6 MONTHS
     Route: 065
  5. VINCRISTINE [Suspect]
     Active Substance: VINCRISTINE
     Indication: EWING^S SARCOMA
     Dosage: 7 CYCLES OVER A PERIOD OF 6 MONTHS
     Route: 065

REACTIONS (1)
  - Neuroblastoma [Unknown]
